FAERS Safety Report 6950119-6 (Version None)
Quarter: 2010Q3

REPORT INFORMATION
  Report Type: 
  Country: None (occurrence: None)
  Receive Date: 20100828
  Receipt Date: 20100314
  Transmission Date: 20110219
  Serious: No
  Sender: FDA-Public Use
  Company Number: US-ABBOTT-10P-163-0620524-00

PATIENT
  Sex: Female
  Weight: 158.9 kg

DRUGS (3)
  1. NIASPAN [Suspect]
     Indication: HYPERCHOLESTEROLAEMIA
     Dates: end: 20100201
  2. DIOVAN [Concomitant]
     Indication: BLOOD PRESSURE
  3. LANTUS [Concomitant]
     Indication: DIABETES MELLITUS

REACTIONS (8)
  - DYSPNOEA [None]
  - FLUSHING [None]
  - INTRAOCULAR PRESSURE TEST ABNORMAL [None]
  - METAMORPHOPSIA [None]
  - OEDEMA [None]
  - PRURITUS [None]
  - SKIN BURNING SENSATION [None]
  - SWELLING [None]
